FAERS Safety Report 10742158 (Version 2)
Quarter: 2015Q1

REPORT INFORMATION
  Report Type: Report from Study
  Country: KR (occurrence: KR)
  Receive Date: 20150127
  Receipt Date: 20150211
  Transmission Date: 20150721
  Serious: Yes (Hospitalization)
  Sender: FDA-Public Use
  Company Number: KR-ABBVIE-10P-090-0656066-00

PATIENT
  Sex: Male
  Weight: 44 kg

DRUGS (17)
  1. ABC [Concomitant]
     Active Substance: UNSPECIFIED INGREDIENT
     Indication: ANTIRETROVIRAL THERAPY
     Dosage: 800MG DAILY
     Dates: start: 20100614
  2. SULFMETHOXAZOL, TRIMETHOPRIM [Concomitant]
     Indication: PROPHYLAXIS
     Dates: start: 20100614, end: 20100624
  3. MACPERAN [Concomitant]
     Indication: PROPHYLAXIS OF NAUSEA AND VOMITING
     Dosage: 3 TABLETS DAILY
     Route: 048
     Dates: start: 20100614, end: 20100621
  4. TAEKUK DAPSONE [Concomitant]
     Indication: PNEUMOCYSTIS JIROVECII PNEUMONIA
  5. 3TC [Concomitant]
     Active Substance: LAMIVUDINE
     Indication: ANTIRETROVIRAL THERAPY
     Dosage: 300MG DAILY
     Route: 048
     Dates: start: 20100614
  6. MEGACE [Concomitant]
     Active Substance: MEGESTROL ACETATE
     Indication: HIV WASTING SYNDROME
     Dosage: 40MG/240ML
     Route: 048
     Dates: start: 20100621
  7. MECOBALAMIN [Concomitant]
     Active Substance: METHYLCOBALAMIN
     Indication: ANAEMIA MEGALOBLASTIC
     Dates: start: 20100625
  8. ENAFON [Concomitant]
     Indication: NEURALGIA
  9. KALETRA [Suspect]
     Active Substance: LOPINAVIR\RITONAVIR
     Indication: PRODUCT USED FOR UNKNOWN INDICATION
     Route: 065
     Dates: start: 20100614
  10. MEGACE [Concomitant]
     Active Substance: MEGESTROL ACETATE
     Indication: DECREASED APPETITE
  11. HUMULIN R [Concomitant]
     Active Substance: INSULIN HUMAN
     Indication: DIABETES MELLITUS
     Dosage: 1000IU/10ML 10ML
  12. DILAX [Suspect]
     Active Substance: BISACODYL
     Indication: OEDEMA PERIPHERAL
     Dosage: 80MG DAILY
     Route: 048
     Dates: start: 20100630, end: 20100713
  13. ALDACTONE [Suspect]
     Active Substance: SPIRONOLACTONE
     Indication: OEDEMA PERIPHERAL
     Dosage: 25MG DAILY
     Route: 048
     Dates: start: 20100630, end: 20100713
  14. SULFMETHOXAZOL, TRIMETHOPRIM [Concomitant]
     Indication: PNEUMOCYSTIS JIROVECII PNEUMONIA
  15. TAEKUK DAPSONE [Concomitant]
     Indication: PROPHYLAXIS
     Dosage: 100MG DAILY
     Route: 048
     Dates: start: 20100625
  16. ENAFON [Concomitant]
     Indication: DEPRESSION
     Dosage: 10MG
  17. DAEWOO FOLIC ACID [Concomitant]
     Indication: ANAEMIA MEGALOBLASTIC
     Dosage: 1MG DAILY
     Route: 048
     Dates: start: 20100625

REACTIONS (12)
  - Oedema peripheral [Recovered/Resolved]
  - Headache [Recovered/Resolved]
  - Hyperkalaemia [Recovering/Resolving]
  - Hyperglycaemia [Recovered/Resolved]
  - Dehydration [Recovered/Resolved]
  - Neuropathy peripheral [Recovering/Resolving]
  - Oral candidiasis [Recovered/Resolved]
  - Folate deficiency [Recovering/Resolving]
  - Hypoproteinaemia [Recovered/Resolved]
  - Anaemia megaloblastic [Recovering/Resolving]
  - Hyponatraemia [Recovered/Resolved]
  - Pneumonia bacterial [Recovered/Resolved]

NARRATIVE: CASE EVENT DATE: 20100621
